FAERS Safety Report 9785754 (Version 3)
Quarter: 2014Q1

REPORT INFORMATION
  Report Type: Spontaneous
  Country: JP (occurrence: None)
  Receive Date: 20131223
  Receipt Date: 20140324
  Transmission Date: 20141002
  Serious: Yes (Hospitalization)
  Sender: FDA-Public Use
  Company Number: SP07332

PATIENT
  Age: 80 Year
  Sex: Female

DRUGS (11)
  1. VISICOL [Suspect]
     Indication: BOWEL PREPARATION
     Route: 048
     Dates: start: 20131207, end: 20131207
  2. WARFARIN [Concomitant]
  3. FAMOTIDINE [Concomitant]
  4. CANDESARTAN [Concomitant]
  5. BISOPROLOL [Concomitant]
  6. PRAVASTATIN [Concomitant]
  7. NIFEDIPINE [Concomitant]
  8. ETIZOLAM [Concomitant]
  9. ALFACALCIDOL [Concomitant]
  10. CALCIUM L ASPARTATE HYDRATE [Concomitant]
  11. SODIUM RISEDRONATE [Concomitant]

REACTIONS (6)
  - Blood pressure decreased [None]
  - Blood creatinine increased [None]
  - Blood urea increased [None]
  - Blood phosphorus increased [None]
  - Renal disorder [None]
  - Renal impairment [None]
